FAERS Safety Report 8906874 (Version 2)
Quarter: 2012Q4

REPORT INFORMATION
  Report Type: 
  Country: IT (occurrence: IT)
  Receive Date: 20121114
  Receipt Date: 20121119
  Transmission Date: 20130627
  Serious: Yes (Hospitalization)
  Sender: FDA-Public Use
  Company Number: IT-NAPPMUNDI-GBR-2012-0012017

PATIENT
  Age: 82 Year
  Sex: Female

DRUGS (3)
  1. OXYCONTIN [Suspect]
     Indication: PAIN
     Dosage: 40 mg, daily
     Route: 048
     Dates: start: 20120601, end: 20120927
  2. GABAPENTIN [Suspect]
     Indication: DIABETIC NEUROPATHY
     Dosage: 1200 mg, daily
     Route: 048
     Dates: start: 20120601, end: 20120927
  3. LYRICA [Concomitant]
     Dosage: 75 mg, daily

REACTIONS (1)
  - Chorea [Recovering/Resolving]
